FAERS Safety Report 11181096 (Version 22)
Quarter: 2016Q1

REPORT INFORMATION
  Report Type: Report from Study
  Country: PT (occurrence: PT)
  Receive Date: 20150611
  Receipt Date: 20160128
  Transmission Date: 20160525
  Serious: Yes (Hospitalization, Other)
  Sender: FDA-Public Use
  Company Number: PT-ROCHE-1587344

PATIENT
  Age: 71 Year
  Sex: Female
  Weight: 69 kg

DRUGS (17)
  1. ENOXAPARIN [Suspect]
     Active Substance: ENOXAPARIN
     Route: 058
     Dates: start: 20150613
  2. TRASTUZUMAB EMTANSINE [Suspect]
     Active Substance: ADO-TRASTUZUMAB EMTANSINE
     Dosage: MOST RECENT DOSE OF TRASTUZUMAB EMTANSINE PRIOR TO EVENT WAS ON 26/MAY/2015
     Route: 042
     Dates: start: 20150309
  3. ENOXAPARIN [Suspect]
     Active Substance: ENOXAPARIN
     Indication: PULMONARY EMBOLISM
     Route: 058
     Dates: start: 20150601, end: 20150618
  4. LEXOTAN [Concomitant]
     Active Substance: BROMAZEPAM
     Route: 065
     Dates: start: 20140707
  5. SIMVASTATIN. [Concomitant]
     Active Substance: SIMVASTATIN
     Route: 065
     Dates: start: 20150131
  6. CAPECITABINE. [Suspect]
     Active Substance: CAPECITABINE
     Indication: HER-2 POSITIVE BREAST CANCER
     Dosage: MOST RECENT DOSE OF CAPECITABINE PRIOR TO EVENT HEMATURIA WAS ON 01/JUN/2015
     Route: 048
     Dates: start: 20150210, end: 20150601
  7. ENOXAPARIN [Suspect]
     Active Substance: ENOXAPARIN
     Route: 058
     Dates: start: 20150929
  8. TRASTUZUMAB EMTANSINE [Suspect]
     Active Substance: ADO-TRASTUZUMAB EMTANSINE
     Dosage: MOST RECENT DOSE OF TRASTUZUMAB EMTANSINE PRIOR TO EVENT HEMATURIA WAS ON 08/SEP/2015
     Route: 042
     Dates: end: 20150928
  9. PARACETAMOL [Concomitant]
     Active Substance: ACETAMINOPHEN
     Route: 065
     Dates: start: 20150126
  10. PANTOPRAZOL [Concomitant]
     Active Substance: PANTOPRAZOLE SODIUM
     Route: 065
     Dates: start: 201412, end: 20150928
  11. TRASTUZUMAB EMTANSINE [Suspect]
     Active Substance: ADO-TRASTUZUMAB EMTANSINE
     Indication: HER-2 POSITIVE BREAST CANCER
     Dosage: MOST RECENT DOSE OF TRASTUZUMAB EMTANSINE PRIOR TO EVENT WAS ON 26/MAY/2015
     Route: 042
     Dates: start: 20150210, end: 20150601
  12. LETTER [Concomitant]
     Dosage: DOSE: 0.1 MG+0.05 MG
     Route: 065
     Dates: start: 20150222, end: 20150612
  13. TOPIRAMATO [Concomitant]
     Active Substance: TOPIRAMATE
     Route: 065
     Dates: start: 20140910
  14. CALCITAB [Concomitant]
     Route: 065
     Dates: start: 20140714
  15. ATORVASTATIN [Concomitant]
     Active Substance: ATORVASTATIN
     Route: 065
     Dates: start: 2015
  16. CAPECITABINE. [Suspect]
     Active Substance: CAPECITABINE
     Dosage: MOST RECENT DOSE OF CAPECITABINE PRIOR TO EVENT HEMATURIA WAS ON 01/JUN/2015
     Route: 048
     Dates: start: 20150309, end: 20150601
  17. OMEPRAZOL [Concomitant]
     Active Substance: OMEPRAZOLE
     Route: 065
     Dates: start: 2011, end: 20150623

REACTIONS (3)
  - Pulmonary embolism [Recovered/Resolved]
  - Haematuria [Recovered/Resolved]
  - Colitis ischaemic [Recovered/Resolved]

NARRATIVE: CASE EVENT DATE: 20150529
